FAERS Safety Report 15917087 (Version 1)
Quarter: 2019Q1

REPORT INFORMATION
  Report Type: Spontaneous
  Country: FR (occurrence: FR)
  Receive Date: 20190205
  Receipt Date: 20190205
  Transmission Date: 20190417
  Serious: Yes (Hospitalization)
  Sender: FDA-Public Use
  Company Number: FR-ZYDUS-029606

PATIENT
  Age: 57 Year
  Sex: Female
  Weight: 61 kg

DRUGS (11)
  1. SEVELAMER [Suspect]
     Active Substance: SEVELAMER
     Indication: BLOOD PHOSPHORUS ABNORMAL
     Route: 048
     Dates: start: 20181006, end: 20181007
  2. DEXCHLORPHENIRAMINE MALEATE/GUAIFENESIN/PSEUDOEPHEDRINE SULFATE [Suspect]
     Active Substance: DEXCHLORPHENIRAMINE MALEATE\GUAIFENESIN\PSEUDOEPHEDRINE SULFATE
     Indication: ALLERGY PROPHYLAXIS
     Dosage: ()
     Route: 042
     Dates: start: 20181006, end: 20181010
  3. ANTITHYMOCYTE IMMUNOGLOBULIN [Suspect]
     Active Substance: THYMOCYTE IMMUNE GLOBULIN NOS
     Indication: PROPHYLAXIS AGAINST TRANSPLANT REJECTION
     Dosage: ()
     Route: 042
     Dates: start: 20181006, end: 20181010
  4. ESOMEPRAZOLE. [Suspect]
     Active Substance: ESOMEPRAZOLE MAGNESIUM
     Indication: PROPHYLAXIS AGAINST GASTROINTESTINAL ULCER
     Route: 042
     Dates: start: 20181006, end: 20181006
  5. PARACETAMOL [Suspect]
     Active Substance: ACETAMINOPHEN
     Indication: GAIT DISTURBANCE
     Route: 042
     Dates: start: 20181006, end: 20181007
  6. PHLOROGLUCINOL [Suspect]
     Active Substance: PHLOROGLUCINOL
     Indication: GAIT DISTURBANCE
     Route: 042
     Dates: start: 20181006, end: 20181007
  7. NEFOPAM/NEFOPAM HYDROCHLORIDE [Suspect]
     Active Substance: NEFOPAM
     Indication: GAIT DISTURBANCE
     Route: 042
     Dates: start: 20181006, end: 20181007
  8. ZOPICLONE [Suspect]
     Active Substance: ZOPICLONE
     Indication: SLEEP DISORDER
     Route: 048
     Dates: start: 20181006, end: 20181007
  9. LORAZEPAM. [Suspect]
     Active Substance: LORAZEPAM
     Indication: ANXIETY
     Route: 048
     Dates: start: 20181006, end: 20181007
  10. OMEPRAZOLE. [Suspect]
     Active Substance: OMEPRAZOLE
     Indication: PROPHYLAXIS AGAINST GASTROINTESTINAL ULCER
     Route: 048
     Dates: start: 20181007, end: 20181007
  11. FUROSEMIDE. [Suspect]
     Active Substance: FUROSEMIDE
     Indication: PRODUCT USED FOR UNKNOWN INDICATION
     Route: 042
     Dates: start: 20181006, end: 20181007

REACTIONS (2)
  - Lung disorder [Recovering/Resolving]
  - Pyrexia [Recovered/Resolved]

NARRATIVE: CASE EVENT DATE: 20181006
